FAERS Safety Report 25477082 (Version 1)
Quarter: 2025Q2

REPORT INFORMATION
  Report Type: Spontaneous
  Country: HR (occurrence: HR)
  Receive Date: 20250625
  Receipt Date: 20250625
  Transmission Date: 20250717
  Serious: Yes (Other)
  Sender: NOVARTIS
  Company Number: HR-002147023-NVSC2025HR099436

PATIENT
  Age: 10 Year
  Sex: Male

DRUGS (2)
  1. COSENTYX [Suspect]
     Active Substance: SECUKINUMAB
     Indication: Juvenile idiopathic arthritis
     Route: 065
     Dates: start: 202412
  2. INDOMETHACIN [Concomitant]
     Active Substance: INDOMETHACIN
     Indication: Product used for unknown indication
     Route: 065

REACTIONS (4)
  - Diarrhoea haemorrhagic [Recovered/Resolved]
  - Crohn^s disease [Recovered/Resolved]
  - Febrile infection [Recovered/Resolved]
  - Faecal calprotectin increased [Recovered/Resolved]
